FAERS Safety Report 5197729-7 (Version None)
Quarter: 2007Q1

REPORT INFORMATION
  Report Type: 
  Country: None (occurrence: None)
  Receive Date: 20070103
  Receipt Date: 20061225
  Transmission Date: 20070707
  Serious: Yes (Other)
  Sender: FDA-Public Use
  Company Number: JP-JNJFOC-20061206623

PATIENT
  Age: 87 Year
  Sex: Male

DRUGS (1)
  1. ITRIZOLE [Suspect]
     Indication: NAIL TINEA
     Route: 048

REACTIONS (4)
  - ABNORMAL BEHAVIOUR [None]
  - DEMENTIA [None]
  - HALLUCINATION [None]
  - SOMNOLENCE [None]
